FAERS Safety Report 5876812-4 (Version None)
Quarter: 2008Q3

REPORT INFORMATION
  Report Type: 
  Country: None (occurrence: None)
  Receive Date: 20080908
  Receipt Date: 20080908
  Transmission Date: 20090109
  Serious: Yes (Other)
  Sender: FDA-Public Use
  Company Number: None

PATIENT
  Age: 54 Year
  Sex: Female
  Weight: 90.7194 kg

DRUGS (1)
  1. FEMARA [Suspect]
     Indication: BREAST CANCER
     Dosage: 2.5MG -1 TAB- EVERY EVENING PO
     Route: 048
     Dates: start: 20080827, end: 20080831

REACTIONS (3)
  - PRURITUS GENERALISED [None]
  - RASH [None]
  - URTICARIA [None]
